FAERS Safety Report 5075804-5 (Version None)
Quarter: 2006Q3

REPORT INFORMATION
  Report Type: 
  Country: None (occurrence: None)
  Receive Date: 20060809
  Receipt Date: 20030422
  Transmission Date: 20061208
  Serious: Yes (Hospitalization)
  Sender: FDA-Public Use
  Company Number: FR-GLAXOSMITHKLINE-B0297901A

PATIENT
  Age: 77 Year
  Sex: Male

DRUGS (9)
  1. AUGMENTIN [Suspect]
     Indication: BRONCHITIS
     Dosage: 500MG THREE TIMES PER DAY
     Route: 048
     Dates: start: 20030128, end: 20030202
  2. AUGMENTIN [Suspect]
     Dosage: 1G THREE TIMES PER DAY
     Route: 048
     Dates: start: 20030203, end: 20030205
  3. ZECLAR [Suspect]
     Indication: BRONCHITIS
     Dosage: 1000MG PER DAY
     Route: 048
     Dates: start: 20030125, end: 20030130
  4. CORVASAL [Concomitant]
     Dosage: .5UNIT THREE TIMES PER DAY
  5. ATACAND [Concomitant]
     Dosage: 16UNIT PER DAY
  6. CORTANCYL [Concomitant]
     Dosage: 4MG PER DAY
  7. DIFFU K [Concomitant]
  8. OMEPRAZOLE [Concomitant]
     Dosage: 1UNIT PER DAY
  9. OSTRAM [Concomitant]
     Dosage: 1UNIT PER DAY

REACTIONS (7)
  - APHTHOUS STOMATITIS [None]
  - CHOLESTASIS [None]
  - DRUG ERUPTION [None]
  - ENANTHEMA [None]
  - HEPATOCELLULAR DAMAGE [None]
  - PYREXIA [None]
  - RASH MACULO-PAPULAR [None]
